FAERS Safety Report 16931255 (Version 1)
Quarter: 2019Q4

REPORT INFORMATION
  Report Type: Spontaneous
  Country: FR (occurrence: FR)
  Receive Date: 20191017
  Receipt Date: 20191017
  Transmission Date: 20200122
  Serious: Yes (Hospitalization, Other)
  Sender: FDA-Public Use
  Company Number: FR-BIOVITRUM-2019FR0940

PATIENT
  Sex: Female
  Weight: 57 kg

DRUGS (5)
  1. DEXERYL [Concomitant]
     Dosage: IN DAILY SKIN APPLICATION ON PRURIGO.
  2. PARACETAMOL [Concomitant]
     Active Substance: ACETAMINOPHEN
     Dosage: 1G, 4 TIMES EVERY DAY IF PAIN EVERY 6 HOURS
  3. AERIUS [Concomitant]
     Dosage: ONE PER DAY IF PRURITUS
  4. ATARAX [Concomitant]
     Active Substance: HYDROXYZINE HYDROCHLORIDE
     Dosage: 25MG AT BEDTIME VIA SUBCUTANEOUS ROUTE
  5. KINERET [Suspect]
     Active Substance: ANAKINRA
     Indication: STILL^S DISEASE
     Route: 064
     Dates: start: 20180605, end: 20180701

REACTIONS (3)
  - Stillbirth [Not Recovered/Not Resolved]
  - Exposure during pregnancy [Recovered/Resolved]
  - Maternal exposure during pregnancy [Recovered/Resolved]
